FAERS Safety Report 17679665 (Version 1)
Quarter: 2020Q2

REPORT INFORMATION
  Report Type: Spontaneous
  Country: US (occurrence: US)
  Receive Date: 20200417
  Receipt Date: 20200417
  Transmission Date: 20200714
  Serious: Yes (Life-Threatening, Hospitalization)
  Sender: FDA-Public Use
  Company Number: US-MYLANLABS-2020M1038085

PATIENT
  Age: 5 Decade
  Sex: Male

DRUGS (10)
  1. PANTOPRAZOLE [Interacting]
     Active Substance: PANTOPRAZOLE
     Indication: PROPHYLAXIS
     Route: 065
  2. METHOTREXATE MYLAN [Suspect]
     Active Substance: METHOTREXATE SODIUM
     Indication: PROPHYLAXIS AGAINST GRAFT VERSUS HOST DISEASE
     Dosage: RECEIVED FOUR DOSES
     Route: 065
  3. CYTARABINE. [Suspect]
     Active Substance: CYTARABINE
     Indication: ACUTE LYMPHOCYTIC LEUKAEMIA RECURRENT
     Dosage: 50 MILLIGRAM
     Route: 037
  4. PENICILLIN VK [Interacting]
     Active Substance: PENICILLIN V POTASSIUM
     Indication: PROPHYLAXIS
     Route: 065
  5. TACROLIMUS. [Concomitant]
     Active Substance: TACROLIMUS
     Indication: PROPHYLAXIS AGAINST GRAFT VERSUS HOST DISEASE
     Route: 065
  6. HYDROCORTISONE. [Concomitant]
     Active Substance: HYDROCORTISONE
     Indication: ACUTE LYMPHOCYTIC LEUKAEMIA RECURRENT
     Dosage: 25 MILLIGRAM
     Route: 037
  7. METHOTREXATE. [Interacting]
     Active Substance: METHOTREXATE
     Indication: ACUTE LYMPHOCYTIC LEUKAEMIA RECURRENT
     Dosage: 12.5 MILLIGRAM IN NACL 0.9%
     Route: 037
  8. PREDNISONE. [Concomitant]
     Active Substance: PREDNISONE
     Indication: GRAFT VERSUS HOST DISEASE
     Route: 065
  9. SODIUM CHLORIDE. [Concomitant]
     Active Substance: SODIUM CHLORIDE
     Indication: PRODUCT USED FOR UNKNOWN INDICATION
     Route: 037
  10. INOTUZUMAB [Concomitant]
     Active Substance: INOTUZUMAB OZOGAMICIN
     Indication: ACUTE LYMPHOCYTIC LEUKAEMIA RECURRENT
     Dosage: RECEIVED TWO CYCLES
     Route: 065

REACTIONS (21)
  - Paraplegia [Unknown]
  - Respiratory failure [Recovered/Resolved]
  - Nephropathy toxic [Unknown]
  - Anuria [Unknown]
  - Labelled drug-drug interaction medication error [Recovering/Resolving]
  - Unresponsive to stimuli [Recovered/Resolved]
  - Quadriplegia [Unknown]
  - Drug level increased [Recovered/Resolved]
  - Mucosal inflammation [Unknown]
  - Dehydration [Unknown]
  - Bone marrow toxicity [Unknown]
  - Acute kidney injury [Unknown]
  - Drug clearance decreased [Recovered/Resolved]
  - Encephalopathy [Recovering/Resolving]
  - Hypotension [Unknown]
  - Gastrointestinal toxicity [Unknown]
  - Neurotoxicity [Recovering/Resolving]
  - Pancytopenia [Unknown]
  - Vomiting [Unknown]
  - Diarrhoea [Unknown]
  - Nausea [Unknown]
